FAERS Safety Report 25382809 (Version 1)
Quarter: 2025Q2

REPORT INFORMATION
  Report Type: Spontaneous
  Country: CN (occurrence: CN)
  Receive Date: 20250602
  Receipt Date: 20250602
  Transmission Date: 20250716
  Serious: Yes (Hospitalization)
  Sender: CHEPLAPHARM
  Company Number: None

PATIENT
  Age: 83 Year
  Sex: Male
  Weight: 65 kg

DRUGS (7)
  1. CAPECITABINE [Suspect]
     Active Substance: CAPECITABINE
     Indication: Squamous cell carcinoma of skin
     Dates: start: 20231009
  2. NIMOTUZUMAB [Suspect]
     Active Substance: NIMOTUZUMAB
     Indication: Squamous cell carcinoma of skin
     Dates: start: 20231009
  3. ZIMBERELIMAB [Suspect]
     Active Substance: ZIMBERELIMAB
     Indication: Squamous cell carcinoma of skin
     Dates: start: 20231009
  4. CETUXIMAB [Suspect]
     Active Substance: CETUXIMAB
     Indication: Targeted cancer therapy
     Route: 042
     Dates: start: 20231103
  5. CETUXIMAB [Suspect]
     Active Substance: CETUXIMAB
     Indication: Squamous cell carcinoma of skin
     Route: 042
     Dates: start: 20231103
  6. LEVOFLOXACIN [Concomitant]
     Active Substance: LEVOFLOXACIN
     Indication: Metastases to eye
     Dosage: INSTILLED EVERY 4 HOURS DURING THE DAY
  7. TETRACYCLINE [Concomitant]
     Active Substance: TETRACYCLINE
     Indication: Metastases to eye
     Dosage: APPLIED BEFORE BEDTIME

REACTIONS (7)
  - Skin toxicity [Recovered/Resolved]
  - Stomatitis [Recovered/Resolved]
  - Radiation skin injury [Recovered/Resolved]
  - Fistula [Recovered/Resolved]
  - Sleep disorder [Unknown]
  - Emotional disorder [Unknown]
  - Off label use [Unknown]

NARRATIVE: CASE EVENT DATE: 20231101
